FAERS Safety Report 16062050 (Version 16)
Quarter: 2021Q4

REPORT INFORMATION
  Report Type: Spontaneous
  Country: US (occurrence: US)
  Receive Date: 20190312
  Receipt Date: 20211123
  Transmission Date: 20220303
  Serious: Yes (Hospitalization, Disabling, Other)
  Sender: FDA-Public Use
  Company Number: US-PFIZER INC-2019097934

PATIENT
  Age: 52 Year
  Sex: Female
  Weight: 67.12 kg

DRUGS (7)
  1. PREMARIN [Suspect]
     Active Substance: ESTROGENS, CONJUGATED
     Indication: Hormone replacement therapy
     Dosage: 0.45 MG, 1X/DAY
     Route: 048
     Dates: start: 2000, end: 201811
  2. PREMARIN [Suspect]
     Active Substance: ESTROGENS, CONJUGATED
     Indication: Hypertension
     Dosage: 0.45 MG, 1X/DAY
     Route: 048
     Dates: end: 20190227
  3. PREMARIN [Suspect]
     Active Substance: ESTROGENS, CONJUGATED
     Indication: Hot flush
     Dosage: 0.45 MG, 1X/DAY
     Route: 048
     Dates: end: 20200129
  4. PREMARIN [Suspect]
     Active Substance: ESTROGENS, CONJUGATED
     Indication: Hysterectomy
     Dosage: 0.45 MG, 1X/DAY
     Route: 048
  5. PREMARIN [Suspect]
     Active Substance: ESTROGENS, CONJUGATED
     Dosage: UNK
  6. PREMARIN [Suspect]
     Active Substance: ESTROGENS, CONJUGATED
     Dosage: UNK
  7. CATAPRES [Concomitant]
     Active Substance: CLONIDINE HYDROCHLORIDE
     Indication: Hypertension
     Dosage: 0.3 MG, 3X/DAY
     Route: 048

REACTIONS (23)
  - Intervertebral disc protrusion [Recovering/Resolving]
  - Cataract [Unknown]
  - Spinal stenosis [Unknown]
  - Spinal column injury [Recovered/Resolved]
  - Limb injury [Unknown]
  - Fall [Unknown]
  - Osteolysis [Unknown]
  - Pain in extremity [Unknown]
  - Dysgraphia [Unknown]
  - Eye infection [Unknown]
  - Ocular hyperaemia [Unknown]
  - Visual impairment [Unknown]
  - Pyrexia [Unknown]
  - Muscle tightness [Unknown]
  - Peripheral swelling [Unknown]
  - Arthropathy [Unknown]
  - Body height decreased [Unknown]
  - Weight increased [Unknown]
  - Insomnia [Unknown]
  - Gait disturbance [Unknown]
  - Somnolence [Unknown]
  - Arthritis [Unknown]
  - Sensitivity to weather change [Unknown]

NARRATIVE: CASE EVENT DATE: 20060101
